FAERS Safety Report 4311049-1 (Version None)
Quarter: 2004Q1

REPORT INFORMATION
  Report Type: 
  Country: None (occurrence: None)
  Receive Date: 20040303
  Receipt Date: 20040303
  Transmission Date: 20041129
  Serious: Yes (Other)
  Sender: FDA-Public Use
  Company Number: None

PATIENT
  Age: 4 Year
  Sex: Female
  Weight: 12.7007 kg

DRUGS (1)
  1. LINEZOLID 100MG/5MLSUSP. (ZYVOX) BY PHARMACIA [Suspect]
     Indication: STAPHYLOCOCCAL INFECTION
     Dosage: 140 MG PO Q12H
     Route: 048
     Dates: start: 20040129, end: 20040213

REACTIONS (8)
  - AGITATION [None]
  - DRUG INTERACTION [None]
  - DYSKINESIA [None]
  - EYE MOVEMENT DISORDER [None]
  - MYDRIASIS [None]
  - MYOCLONUS [None]
  - NYSTAGMUS [None]
  - RESTLESSNESS [None]
